FAERS Safety Report 4776274-4 (Version None)
Quarter: 2005Q3

REPORT INFORMATION
  Report Type: 
  Country: None (occurrence: None)
  Receive Date: 20050922
  Receipt Date: 20050914
  Transmission Date: 20060218
  Serious: Yes (Hospitalization)
  Sender: FDA-Public Use
  Company Number: US-JNJFOC-20050503452

PATIENT
  Sex: Male
  Weight: 79.38 kg

DRUGS (13)
  1. FENTANYL [Suspect]
     Route: 062
  2. DURAGESIC-50 [Suspect]
     Route: 062
  3. XANAX [Concomitant]
     Indication: ANXIETY
     Route: 048
  4. ATENOLOL [Concomitant]
     Route: 048
  5. TRAZODONE HCL [Concomitant]
     Indication: DEPRESSION
     Route: 048
  6. TRAZODONE HCL [Concomitant]
     Indication: INSOMNIA
     Route: 048
  7. MELLARIL [Concomitant]
     Indication: ANXIETY
     Route: 048
  8. KLONOPIN [Concomitant]
     Indication: PANIC DISORDER
     Route: 048
  9. NEXIUM [Concomitant]
     Indication: ULCER
     Route: 048
  10. PANCREASE [Concomitant]
     Indication: PANCREATITIS
     Route: 048
  11. PHENEGRAN [Concomitant]
     Indication: NAUSEA
     Dosage: 4-5 TABLETS/DAILY
     Route: 048
  12. DILAUDID [Concomitant]
     Indication: PAIN
  13. TOPROL-XL [Concomitant]
     Indication: DRUG USE FOR UNKNOWN INDICATION

REACTIONS (9)
  - ANXIETY [None]
  - CHEST PAIN [None]
  - DIARRHOEA [None]
  - DRUG INEFFECTIVE [None]
  - DRY MOUTH [None]
  - EYE IRRITATION [None]
  - NASAL DRYNESS [None]
  - PANCREATITIS [None]
  - VOMITING [None]
